FAERS Safety Report 9301654 (Version 1)
Quarter: 2013Q2

REPORT INFORMATION
  Report Type: Spontaneous
  Country: US (occurrence: None)
  Receive Date: 20130520
  Receipt Date: 20130520
  Transmission Date: 20140414
  Serious: Yes (Disabling, Other)
  Sender: FDA-Public Use
  Company Number: None

PATIENT
  Age: 51 Year
  Sex: Male
  Weight: 94.8 kg

DRUGS (2)
  1. PHENYTOIN [Suspect]
     Indication: EPILEPSY
     Route: 048
     Dates: start: 200501, end: 20121001
  2. LEVETIRACETAM [Concomitant]

REACTIONS (8)
  - Ataxia [None]
  - Dizziness [None]
  - Paraesthesia [None]
  - Pain in extremity [None]
  - Anticonvulsant drug level above therapeutic [None]
  - Product substitution issue [None]
  - Coordination abnormal [None]
  - Hypoaesthesia [None]
